FAERS Safety Report 26020862 (Version 1)
Quarter: 2025Q4

REPORT INFORMATION
  Report Type: Spontaneous
  Country: US (occurrence: US)
  Receive Date: 20251110
  Receipt Date: 20251110
  Transmission Date: 20260118
  Serious: Yes (Death)
  Sender: IPSEN BIOPHARMACEUTICALS, INC.
  Company Number: US-IPSEN Group, Research and Development-2025-27621

PATIENT
  Age: 74 Year
  Sex: Male
  Weight: 96 kg

DRUGS (2)
  1. LANREOTIDE ACETATE [Suspect]
     Active Substance: LANREOTIDE ACETATE
     Indication: Acromegaly
     Dosage: UNDER THE SKIN
  2. LANREOTIDE ACETATE [Suspect]
     Active Substance: LANREOTIDE ACETATE
     Indication: Gigantism

REACTIONS (1)
  - Death [Fatal]

NARRATIVE: CASE EVENT DATE: 20251009
